FAERS Safety Report 18156938 (Version 2)
Quarter: 2025Q1

REPORT INFORMATION
  Report Type: Spontaneous
  Country: SE (occurrence: SE)
  Receive Date: 20200817
  Receipt Date: 20250331
  Transmission Date: 20250408
  Serious: Yes (Death, Other)
  Sender: ACCORD
  Company Number: None

PATIENT
  Age: 26 Year
  Sex: Male

DRUGS (16)
  1. CLONAZEPAM [Interacting]
     Active Substance: CLONAZEPAM
     Indication: Product used for unknown indication
     Route: 065
  2. DIAZEPAM [Interacting]
     Active Substance: DIAZEPAM
     Indication: Product used for unknown indication
     Route: 065
  3. PREGABALIN [Interacting]
     Active Substance: PREGABALIN
     Indication: Overdose
     Route: 065
  4. GABAPENTIN [Interacting]
     Active Substance: GABAPENTIN
     Indication: Product used for unknown indication
     Route: 065
  5. BUPRENORPHINE [Interacting]
     Active Substance: BUPRENORPHINE
     Indication: Overdose
     Route: 065
  6. CARBAMAZEPINE [Interacting]
     Active Substance: CARBAMAZEPINE
     Indication: Overdose
     Route: 065
  7. TRIMEPRAZINE [Interacting]
     Active Substance: TRIMEPRAZINE
     Indication: Product used for unknown indication
     Route: 065
  8. METHYLPHENIDATE [Interacting]
     Active Substance: METHYLPHENIDATE
     Indication: Product used for unknown indication
     Route: 065
  9. FENTANYL [Interacting]
     Active Substance: FENTANYL
     Indication: Product used for unknown indication
     Route: 065
  10. ALPRAZOLAM [Interacting]
     Active Substance: ALPRAZOLAM
     Indication: Product used for unknown indication
     Route: 065
  11. DRONABINOL [Interacting]
     Active Substance: DRONABINOL
     Indication: Product used for unknown indication
  12. REMERON [Interacting]
     Active Substance: MIRTAZAPINE
     Indication: Product used for unknown indication
     Route: 048
  13. CANNABIS SATIVA SUBSP. INDICA TOP [Interacting]
     Active Substance: CANNABIS SATIVA SUBSP. INDICA TOP
     Indication: Product used for unknown indication
     Route: 065
  14. DRONABINOL [Interacting]
     Active Substance: DRONABINOL
     Indication: Performance enhancing product use
  15. MIRTAZAPINE [Interacting]
     Active Substance: MIRTAZAPINE
     Indication: Product used for unknown indication
  16. ZOPICLONE [Concomitant]
     Active Substance: ZOPICLONE
     Indication: Product used for unknown indication
     Route: 065

REACTIONS (7)
  - Brain oedema [Fatal]
  - Drug interaction [Fatal]
  - Toxicity to various agents [Fatal]
  - Pulmonary oedema [Fatal]
  - Accidental overdose [Fatal]
  - Drug tolerance [Fatal]
  - Drug abuse [Fatal]
